FAERS Safety Report 6128550-0 (Version None)
Quarter: 2009Q1

REPORT INFORMATION
  Report Type: 
  Country: None (occurrence: None)
  Receive Date: 20090323
  Receipt Date: 20090312
  Transmission Date: 20090719
  Serious: Yes (Other)
  Sender: FDA-Public Use
  Company Number: BR-ELI_LILLY_AND_COMPANY-BR200903003262

PATIENT
  Age: 31 Year
  Sex: Female

DRUGS (2)
  1. ZYPREXA [Suspect]
     Indication: BIPOLAR DISORDER
     Dosage: 10 MG, DAILY (1/D)
     Route: 048
     Dates: start: 20090211, end: 20090216
  2. LITHIUM CARBONATE [Concomitant]
     Dosage: 450 MG, UNKNOWN
     Route: 048

REACTIONS (1)
  - LEUKOPENIA [None]
